FAERS Safety Report 5720648-1 (Version None)
Quarter: 2008Q2

REPORT INFORMATION
  Report Type: 
  Country: None (occurrence: None)
  Receive Date: 20080429
  Receipt Date: 20080417
  Transmission Date: 20081010
  Serious: Yes (Hospitalization)
  Sender: FDA-Public Use
  Company Number: US-JNJFOC-20080405167

PATIENT
  Sex: Female
  Weight: 83.92 kg

DRUGS (5)
  1. TYLOX [Suspect]
     Indication: ABDOMINAL PAIN
     Route: 048
  2. HUMIRA [Suspect]
     Indication: CROHN'S DISEASE
     Route: 058
  3. TORADOL [Suspect]
     Indication: ABDOMINAL PAIN
     Route: 065
  4. ULTRAM [Concomitant]
     Indication: ABDOMINAL PAIN
     Route: 065
  5. FAMOTIDINE [Concomitant]
     Indication: GASTROOESOPHAGEAL REFLUX DISEASE
     Route: 048

REACTIONS (5)
  - ABDOMINAL PAIN [None]
  - FACIAL PAIN [None]
  - NAUSEA [None]
  - PARAESTHESIA [None]
  - SWELLING FACE [None]
